FAERS Safety Report 9169525 (Version 2)
Quarter: 2013Q2

REPORT INFORMATION
  Report Type: Spontaneous
  Country: US (occurrence: US)
  Receive Date: 20130318
  Receipt Date: 20130411
  Transmission Date: 20140414
  Serious: Yes (Other)
  Sender: FDA-Public Use
  Company Number: US-ASTRAZENECA-2013SE15663

PATIENT
  Age: 663 Month
  Sex: Female
  Weight: 54 kg

DRUGS (3)
  1. BRILINTA [Suspect]
     Indication: ATRIAL SEPTAL DEFECT
     Route: 048
     Dates: end: 201211
  2. BRILINTA [Suspect]
     Indication: ATRIAL SEPTAL DEFECT
     Route: 048
     Dates: start: 2013
  3. PLAVIX [Suspect]
     Route: 048

REACTIONS (6)
  - Migraine [Recovering/Resolving]
  - Pain [Unknown]
  - Nausea [Unknown]
  - Headache [Unknown]
  - Intentional drug misuse [Unknown]
  - Off label use [Unknown]
